FAERS Safety Report 18814918 (Version 1)
Quarter: 2021Q1

REPORT INFORMATION
  Report Type: Spontaneous
  Country: US (occurrence: US)
  Receive Date: 20210129
  Receipt Date: 20210129
  Transmission Date: 20210419
  Serious: Yes (Other)
  Sender: FDA-Public Use
  Company Number: None

PATIENT
  Age: 66 Year
  Sex: Female

DRUGS (1)
  1. AVONEX [Suspect]
     Active Substance: INTERFERON BETA-1A
     Indication: MULTIPLE SCLEROSIS
     Dosage: ?          OTHER STRENGTH: 30MCG/0.5ML;?
     Route: 030
     Dates: start: 20060523

REACTIONS (5)
  - Pain in extremity [None]
  - Tension headache [None]
  - Movement disorder [None]
  - Hypoaesthesia [None]
  - Muscle tightness [None]

NARRATIVE: CASE EVENT DATE: 20210121
